FAERS Safety Report 6265785-0 (Version None)
Quarter: 2009Q3

REPORT INFORMATION
  Report Type: 
  Country: None (occurrence: None)
  Receive Date: 20090713
  Receipt Date: 20090701
  Transmission Date: 20100115
  Serious: Yes (Other)
  Sender: FDA-Public Use
  Company Number: A0665828A

PATIENT
  Age: 54 Year
  Sex: Female

DRUGS (1)
  1. REQUIP [Suspect]
     Indication: RESTLESS LEGS SYNDROME
     Route: 048
     Dates: end: 20070101

REACTIONS (5)
  - AFFECTIVE DISORDER [None]
  - BANKRUPTCY [None]
  - FATIGUE [None]
  - PATHOLOGICAL GAMBLING [None]
  - SUICIDAL IDEATION [None]
